FAERS Safety Report 18044343 (Version 1)
Quarter: 2020Q3

REPORT INFORMATION
  Report Type: Spontaneous
  Country: KR (occurrence: KR)
  Receive Date: 20200720
  Receipt Date: 20200720
  Transmission Date: 20201103
  Serious: Yes (Other)
  Sender: FDA-Public Use
  Company Number: KR-MACLEODS PHARMACEUTICALS US LTD-MAC2020027326

PATIENT

DRUGS (5)
  1. SEVOFLURANE. [Concomitant]
     Active Substance: SEVOFLURANE
     Indication: SEDATION
     Dosage: UNK, 2?3 VOL PERCENT
  2. EPINEPHRINE. [Concomitant]
     Active Substance: EPINEPHRINE
     Indication: PRODUCT USED FOR UNKNOWN INDICATION
     Dosage: UNK, LIDOCAINE 1% WITH EPINEPHRINE (1: 10,000)
  3. KETAMINE [Concomitant]
     Active Substance: KETAMINE
     Indication: PRODUCT USED FOR UNKNOWN INDICATION
     Dosage: 15 MILLIGRAM
     Route: 042
  4. LIDOCAINE. [Suspect]
     Active Substance: LIDOCAINE
     Indication: ANAESTHESIA
     Dosage: 1 PERCENT, SINGLE, 1 PERCENT, EPINEPHRINE (1: 10,000), FOUR?QUADRANT BLOCKS
  5. EMLA [Concomitant]
     Active Substance: LIDOCAINE\PRILOCAINE
     Indication: ANAESTHESIA
     Dosage: UNK, EUTECTIC MIXTURE OF LIDOCAINE 2.5% AND PRILOCAINE 2.5%
     Route: 061

REACTIONS (1)
  - Facial paralysis [Recovered/Resolved]
